FAERS Safety Report 5849899-2 (Version None)
Quarter: 2008Q3

REPORT INFORMATION
  Report Type: 
  Country: None (occurrence: None)
  Receive Date: 20080819
  Receipt Date: 20080807
  Transmission Date: 20090109
  Serious: Yes (Hospitalization, Other)
  Sender: FDA-Public Use
  Company Number: NL-AMGEN-UK300183

PATIENT
  Sex: Male
  Weight: 72 kg

DRUGS (10)
  1. ARANESP [Suspect]
     Indication: RENAL TRANSPLANT
     Route: 058
     Dates: start: 20070601
  2. ARANESP [Suspect]
     Route: 058
  3. PREDNISOLON [Concomitant]
     Dates: start: 20080701
  4. ENDOXAN [Concomitant]
     Dates: start: 20080807
  5. AMLODIPINE [Concomitant]
  6. CO-TRIMOXAZOLE [Concomitant]
  7. ETALPHA [Concomitant]
  8. FUROSEMIDE [Concomitant]
  9. FRAXIPARINE [Concomitant]
  10. SELOKEEN [Concomitant]

REACTIONS (2)
  - APLASIA PURE RED CELL [None]
  - LARGE GRANULAR LYMPHOCYTOSIS [None]
